FAERS Safety Report 16083127 (Version 3)
Quarter: 2019Q2

REPORT INFORMATION
  Report Type: Spontaneous
  Country: GB (occurrence: GB)
  Receive Date: 20190318
  Receipt Date: 20190429
  Transmission Date: 20190711
  Serious: Yes (Other)
  Sender: FDA-Public Use
  Company Number: GB-ACCORD-113136

PATIENT
  Age: 81 Year
  Sex: Female
  Weight: 70 kg

DRUGS (10)
  1. CLOPIDOGREL [Suspect]
     Active Substance: CLOPIDOGREL BISULFATE
     Indication: PRODUCT USED FOR UNKNOWN INDICATION
     Dosage: LAST PRESCRIPTION WAS 14-FEB-2018
     Dates: start: 20170818
  2. SALICYLATE SODIUM/SALICYLIC ACID/SALICYLIC ACID TRIETHANOLAMINE [Concomitant]
     Dates: start: 20181022
  3. DIPROBASE [Concomitant]
     Active Substance: CHLOROCRESOL
     Dosage: APPLY TO SKIN FREQUENTLY AND LIBERALLY, AS OFTE...
     Dates: start: 20160129
  4. GLUCOSAMINE [Concomitant]
     Active Substance: GLUCOSAMINE
     Dates: start: 20151013
  5. PHENOXYMETHYLPENICILLIN [Concomitant]
     Active Substance: PENICILLIN V
     Dates: start: 20151013
  6. CETIRIZINE [Concomitant]
     Active Substance: CETIRIZINE HYDROCHLORIDE
     Dates: start: 20180727, end: 20180824
  7. AMLODIPINE [Suspect]
     Active Substance: AMLODIPINE BESYLATE
     Indication: HYPERTENSION
     Dosage: LAST PRESCRIPTION WAS 14-FEB-2018
     Dates: start: 20170818
  8. PARACETAMOL [Concomitant]
     Active Substance: ACETAMINOPHEN
     Dosage: FOUR TIMES DAILY
     Dates: start: 20151013
  9. FENOFIBRATE. [Suspect]
     Active Substance: FENOFIBRATE
     Indication: PRODUCT USED FOR UNKNOWN INDICATION
     Dosage: LAST PRESCRIPTION 14-FEB-2018
     Dates: start: 20171020
  10. LEVOTHYROXINE. [Concomitant]
     Active Substance: LEVOTHYROXINE
     Dates: start: 20151013

REACTIONS (6)
  - Cough [Unknown]
  - Psoriasis [Recovering/Resolving]
  - Jaundice [Unknown]
  - Rash [Unknown]
  - Lichen nitidus [Not Recovered/Not Resolved]
  - Pruritus generalised [Unknown]

NARRATIVE: CASE EVENT DATE: 201803
